FAERS Safety Report 19213315 (Version 10)
Quarter: 2022Q1

REPORT INFORMATION
  Report Type: Report from Study
  Country: US (occurrence: US)
  Receive Date: 20210504
  Receipt Date: 20220114
  Transmission Date: 20220424
  Serious: Yes (Other)
  Sender: FDA-Public Use
  Company Number: US-NOVARTISPH-NVSC2021US092568

PATIENT
  Age: 84 Year
  Sex: Male

DRUGS (5)
  1. BEOVU [Suspect]
     Active Substance: BROLUCIZUMAB-DBLL
     Indication: Neovascular age-related macular degeneration
     Dosage: UNK (LEFT EYE)
     Route: 047
  2. BEOVU [Suspect]
     Active Substance: BROLUCIZUMAB-DBLL
     Dosage: UNK (EVERY 8 WEEKS)
     Route: 047
     Dates: start: 20210603
  3. BEOVU [Suspect]
     Active Substance: BROLUCIZUMAB-DBLL
     Dosage: UNK (EVERY 7-8  WEEKS)
     Route: 047
  4. BEOVU [Suspect]
     Active Substance: BROLUCIZUMAB-DBLL
     Dosage: UNK (EVERY 7 TO 8 WEEKS)
     Route: 047
  5. COUMADIN [Concomitant]
     Active Substance: WARFARIN SODIUM
     Indication: Product used for unknown indication
     Dosage: UNK
     Route: 065

REACTIONS (10)
  - Eye haemorrhage [Unknown]
  - Lung neoplasm malignant [Unknown]
  - Lung disorder [Unknown]
  - Cough [Unknown]
  - Chest pain [Unknown]
  - Vitreous floaters [Unknown]
  - Vision blurred [Unknown]
  - Visual impairment [Unknown]
  - Product dose omission issue [Unknown]
  - Drug ineffective [Unknown]

NARRATIVE: CASE EVENT DATE: 20210603
